FAERS Safety Report 7011686-X (Version None)
Quarter: 2010Q3

REPORT INFORMATION
  Report Type: 
  Country: None (occurrence: None)
  Receive Date: 20100923
  Receipt Date: 20090506
  Transmission Date: 20110219
  Serious: No
  Sender: FDA-Public Use
  Company Number: US-WYE-H09242009

PATIENT
  Sex: Female
  Weight: 55.39 kg

DRUGS (6)
  1. PREMARIN [Suspect]
     Indication: OESTROGEN REPLACEMENT THERAPY
     Dosage: 1.25 MG DAILY
     Route: 048
     Dates: start: 20090430
  2. VALIUM [Concomitant]
     Indication: ANXIETY
     Dosage: AS NEEDED
  3. TRAZODONE HCL [Concomitant]
     Indication: INSOMNIA
     Dosage: AT BEDTIME
  4. TRAMADOL [Concomitant]
     Indication: FIBROMYALGIA
     Dosage: NOT PROVIDED
     Dates: start: 20080101
  5. PROMETRIUM [Suspect]
     Indication: HORMONE REPLACEMENT THERAPY
     Route: 048
     Dates: start: 20090430
  6. PRISTIQ [Suspect]
     Indication: DEPRESSION
     Route: 048
     Dates: start: 20090430, end: 20090505

REACTIONS (2)
  - HEADACHE [None]
  - VISION BLURRED [None]
